FAERS Safety Report 10901659 (Version 1)
Quarter: 2015Q1

REPORT INFORMATION
  Report Type: Spontaneous
  Country: US (occurrence: None)
  Receive Date: 20150303
  Receipt Date: 20150303
  Transmission Date: 20150721
  Serious: No
  Sender: FDA-Public Use
  Company Number: None

PATIENT
  Age: 65 Year
  Sex: Female
  Weight: 108.86 kg

DRUGS (4)
  1. CORTAID [Suspect]
     Active Substance: HYDROCORTISONE
     Indication: PRURITUS
     Dosage: APPLIED TO A SURFACE, USUALLY THE SKIN
     Dates: start: 20150201, end: 20150213
  2. ARMOUR THYROID [Concomitant]
     Active Substance: THYROID, PORCINE\THYROID, UNSPECIFIED
  3. CORTAID [Suspect]
     Active Substance: HYDROCORTISONE
     Indication: ECZEMA
     Dosage: APPLIED TO A SURFACE, USUALLY THE SKIN
     Dates: start: 20150201, end: 20150213
  4. AVAPRO [Concomitant]
     Active Substance: IRBESARTAN

REACTIONS (2)
  - Hair growth abnormal [None]
  - Hair colour changes [None]

NARRATIVE: CASE EVENT DATE: 20150215
